FAERS Safety Report 6291965-4 (Version None)
Quarter: 2009Q3

REPORT INFORMATION
  Report Type: 
  Country: None (occurrence: None)
  Receive Date: 20090729
  Receipt Date: 20090724
  Transmission Date: 20100115
  Serious: Yes (Hospitalization)
  Sender: FDA-Public Use
  Company Number: SPV1-2009-01528

PATIENT
  Age: 59 Year
  Sex: Male

DRUGS (1)
  1. FOSRENOL [Suspect]
     Indication: HYPERPHOSPHATAEMIA
     Dosage: 2000 MG, (2) 1000MG TABLETS WITH EACH MEAL, ORAL
     Route: 048

REACTIONS (1)
  - BENIGN COLONIC NEOPLASM [None]
